FAERS Safety Report 9388514 (Version 2)
Quarter: 2014Q2

REPORT INFORMATION
  Report Type: Spontaneous
  Country: US (occurrence: US)
  Receive Date: 20130708
  Receipt Date: 20140612
  Transmission Date: 20141212
  Serious: Yes (Death)
  Sender: FDA-Public Use
  Company Number: US-GLAXOSMITHKLINE-A1030991A

PATIENT
  Age: 74 Year
  Sex: Male
  Weight: 117.3 kg

DRUGS (1)
  1. AVANDIA [Suspect]
     Indication: DIABETES MELLITUS
     Dosage: 4MG UNKNOWN
     Route: 048
     Dates: end: 200208

REACTIONS (7)
  - Respiratory arrest [Fatal]
  - Cardiac failure congestive [Unknown]
  - Septic shock [Unknown]
  - Atrial fibrillation [Unknown]
  - Renal failure acute [Unknown]
  - Sepsis [Unknown]
  - Myocardial infarction [Unknown]
